FAERS Safety Report 10296977 (Version 2)
Quarter: 2017Q1

REPORT INFORMATION
  Report Type: Report from Study
  Country: EG (occurrence: EG)
  Receive Date: 20140711
  Receipt Date: 20170127
  Transmission Date: 20170428
  Serious: Yes (Life-Threatening)
  Sender: FDA-Public Use
  Company Number: EG-ROCHE-1424559

PATIENT
  Age: 44 Year
  Sex: Female
  Weight: 65 kg

DRUGS (15)
  1. PARACETAMOL [Concomitant]
     Active Substance: ACETAMINOPHEN
     Route: 048
     Dates: start: 20101023, end: 20101204
  2. DOMPERIDONE [Concomitant]
     Active Substance: DOMPERIDONE
  3. EPIRUBICIN [Concomitant]
     Active Substance: EPIRUBICIN
     Route: 065
  4. TRASTUZUMAB [Suspect]
     Active Substance: TRASTUZUMAB
     Indication: BREAST CANCER
     Dosage: LOADING DOSE
     Route: 042
  5. GRANISETRON [Concomitant]
     Active Substance: GRANISETRON
     Route: 042
     Dates: start: 20101023, end: 20101204
  6. ALLOPURINOL. [Concomitant]
     Active Substance: ALLOPURINOL
     Route: 048
     Dates: start: 20101023, end: 20101204
  7. CYCLOPHOSPHAMIDE. [Concomitant]
     Active Substance: CYCLOPHOSPHAMIDE
  8. SILYMARIN [Concomitant]
     Active Substance: MILK THISTLE
     Route: 048
     Dates: start: 20101023
  9. XELODA [Concomitant]
     Active Substance: CAPECITABINE
     Dosage: 14 DAY
     Route: 048
     Dates: start: 20101023, end: 20101204
  10. DEXAMETHASONE. [Concomitant]
     Active Substance: DEXAMETHASONE
     Route: 042
     Dates: start: 20101023, end: 20101204
  11. 5-FLUOROURACIL [Concomitant]
     Active Substance: FLUOROURACIL
  12. TRASTUZUMAB [Suspect]
     Active Substance: TRASTUZUMAB
     Dosage: MAINTAINANCE DOSE
     Route: 042
  13. TRASTUZUMAB [Suspect]
     Active Substance: TRASTUZUMAB
     Dosage: ON 23/OCT/2011, 09/NOV/2011 AND 04/DEC/2011
     Route: 065
  14. RANITIDINE. [Concomitant]
     Active Substance: RANITIDINE
     Route: 042
     Dates: start: 20101023, end: 20101204
  15. DIPHENHYDRAMINE. [Concomitant]
     Active Substance: DIPHENHYDRAMINE
     Route: 042
     Dates: start: 20101023, end: 20101204

REACTIONS (1)
  - Breast cancer metastatic [Not Recovered/Not Resolved]

NARRATIVE: CASE EVENT DATE: 20101225
